FAERS Safety Report 6938803-1 (Version None)
Quarter: 2010Q3

REPORT INFORMATION
  Report Type: 
  Country: None (occurrence: None)
  Receive Date: 20100824
  Receipt Date: 20100813
  Transmission Date: 20110219
  Serious: Yes (Other)
  Sender: FDA-Public Use
  Company Number: US-ROCHE-721704

PATIENT
  Sex: Male
  Weight: 117.5 kg

DRUGS (2)
  1. CELLCEPT [Suspect]
     Route: 048
  2. PROGRAF [Concomitant]

REACTIONS (1)
  - TRANSPLANT FAILURE [None]
